FAERS Safety Report 13055061 (Version 1)
Quarter: 2016Q4

REPORT INFORMATION
  Report Type: Spontaneous
  Country: TR (occurrence: TR)
  Receive Date: 20161222
  Receipt Date: 20161222
  Transmission Date: 20170207
  Serious: Yes (Other)
  Sender: FDA-Public Use
  Company Number: TR-PFIZER INC-2016590390

PATIENT

DRUGS (1)
  1. SIROLIMUS. [Suspect]
     Active Substance: SIROLIMUS
     Indication: HYPERINSULINAEMIC HYPOGLYCAEMIA
     Dosage: UNK

REACTIONS (3)
  - Product use issue [Unknown]
  - Hepatic failure [Unknown]
  - Renal failure [Unknown]
